FAERS Safety Report 17657169 (Version 2)
Quarter: 2020Q4

REPORT INFORMATION
  Report Type: Spontaneous
  Country: NL (occurrence: NL)
  Receive Date: 20200410
  Receipt Date: 20201021
  Transmission Date: 20210113
  Serious: Yes (Other)
  Sender: FDA-Public Use
  Company Number: NL-PURDUE-GBR-2020-0076149

PATIENT
  Sex: Female

DRUGS (7)
  1. MORPHINE SULFATE. [Suspect]
     Active Substance: MORPHINE SULFATE
     Dosage: 1 DF, DAILY (1 DF, QD)
     Route: 065
  2. MORPHINE SULFATE. [Suspect]
     Active Substance: MORPHINE SULFATE
     Indication: PAIN
     Dosage: 2 DF, DAILY (2 DF, QD)
     Route: 065
  3. OXYCODONE HYDROCHLORIDE. [Suspect]
     Active Substance: OXYCODONE HYDROCHLORIDE
     Indication: SKIN ULCER
  4. OXYCODONE HYDROCHLORIDE. [Suspect]
     Active Substance: OXYCODONE HYDROCHLORIDE
     Indication: SKIN ULCER
     Dosage: 40 MG, DAILY (20 MG, BID)
     Route: 065
     Dates: start: 2018
  5. MORPHINE SULFATE. [Suspect]
     Active Substance: MORPHINE SULFATE
     Dosage: 2 DF, DAILY (2 DF, QD)
     Route: 065
  6. MORPHINE SULFATE. [Suspect]
     Active Substance: MORPHINE SULFATE
     Dosage: 1 DF, DAILY (1 DF, QD)
     Route: 065
  7. MORFINE HCL RETARD MYLAN 10 MG, TABLETTEN MET VERLENGDE AFGIFTE [Suspect]
     Active Substance: MORPHINE HYDROCHLORIDE
     Indication: PAIN
     Dosage: 60 MG, DAILY (STRENGTH 30MG)
     Route: 065

REACTIONS (6)
  - Fall [Unknown]
  - Confusional state [Unknown]
  - Product use in unapproved indication [Unknown]
  - Dementia [Not Recovered/Not Resolved]
  - Feeling abnormal [Unknown]
  - Hypersomnia [Unknown]

NARRATIVE: CASE EVENT DATE: 20190629
